FAERS Safety Report 10749727 (Version 5)
Quarter: 2015Q4

REPORT INFORMATION
  Report Type: Spontaneous
  Country: US (occurrence: US)
  Receive Date: 20150129
  Receipt Date: 20151120
  Transmission Date: 20160304
  Serious: No
  Sender: FDA-Public Use
  Company Number: US-PFIZER INC-2015039539

PATIENT
  Age: 40 Year
  Sex: Male
  Weight: 109 kg

DRUGS (3)
  1. LYRICA [Suspect]
     Active Substance: PREGABALIN
     Indication: PHANTOM PAIN
     Dosage: 50 MG, 2X/DAY
     Route: 048
     Dates: start: 201502
  2. LYRICA [Suspect]
     Active Substance: PREGABALIN
     Indication: NEUROPATHY PERIPHERAL
  3. LYRICA [Suspect]
     Active Substance: PREGABALIN
     Indication: PAIN IN EXTREMITY
     Dosage: 50 MG, 2X/DAY
     Route: 048
     Dates: start: 20140305

REACTIONS (4)
  - Drug ineffective for unapproved indication [Unknown]
  - Hypokinesia [Unknown]
  - Activities of daily living impaired [Unknown]
  - Insomnia [Unknown]

NARRATIVE: CASE EVENT DATE: 2015
